FAERS Safety Report 7431831-1 (Version None)
Quarter: 2011Q2

REPORT INFORMATION
  Report Type: 
  Country: None (occurrence: None)
  Receive Date: 20110422
  Receipt Date: 20110411
  Transmission Date: 20111010
  Serious: Yes (Other)
  Sender: FDA-Public Use
  Company Number: US-ELI_LILLY_AND_COMPANY-US201008005418

PATIENT
  Sex: Female

DRUGS (14)
  1. CALCIUM [Concomitant]
  2. FISH OIL [Concomitant]
  3. VITAMIN D [Concomitant]
  4. ASPIRIN [Concomitant]
  5. LOTREL [Concomitant]
     Dosage: UNK, UNKNOWN
     Route: 065
  6. VITAMINS [Concomitant]
  7. CHOLESTEROL [Concomitant]
  8. FORTEO [Suspect]
     Indication: OSTEOPOROSIS
     Dosage: 20 UG, DAILY (1/D)
     Route: 058
     Dates: start: 20100614
  9. NASACORT [Concomitant]
     Indication: HYPERSENSITIVITY
     Dosage: ONE PUFF IN EACH NOSTRIL, EACH EVENING
     Route: 045
  10. FORTEO [Suspect]
     Dosage: 20 UG, QD
     Route: 058
  11. LESCOL [Concomitant]
  12. LO-TROL [Concomitant]
     Dosage: UNK, UNKNOWN
     Route: 065
  13. ZOLOFT [Concomitant]
  14. AMBIEN [Concomitant]

REACTIONS (23)
  - FALL [None]
  - PAIN IN EXTREMITY [None]
  - ARTHRITIS [None]
  - PAIN [None]
  - BURNING SENSATION [None]
  - URTICARIA [None]
  - INJECTION SITE PAIN [None]
  - RETCHING [None]
  - RASH [None]
  - UPPER LIMB FRACTURE [None]
  - INTERVERTEBRAL DISC PROTRUSION [None]
  - VOMITING [None]
  - SPINAL FRACTURE [None]
  - MALAISE [None]
  - CREPITATIONS [None]
  - NAUSEA [None]
  - FINGER DEFORMITY [None]
  - NECK PAIN [None]
  - BACK PAIN [None]
  - PARAESTHESIA [None]
  - WEIGHT DECREASED [None]
  - RESTLESS LEGS SYNDROME [None]
  - SCIATICA [None]
